FAERS Safety Report 6581636-9 (Version None)
Quarter: 2010Q1

REPORT INFORMATION
  Report Type: 
  Country: None (occurrence: None)
  Receive Date: 20100211
  Receipt Date: 20100211
  Transmission Date: 20100710
  Serious: Yes (Other)
  Sender: FDA-Public Use
  Company Number: None

PATIENT
  Sex: Female
  Weight: 56.6996 kg

DRUGS (1)
  1. VALACYCLOVIR [Suspect]
     Indication: GENITAL HERPES
     Dosage: ONE PILL -1 GRAM- 1 EVERY DAY PO
     Route: 048
     Dates: start: 20100111, end: 20100210

REACTIONS (5)
  - DISEASE PRODROMAL STAGE [None]
  - DRUG EFFECT DECREASED [None]
  - PRODUCT QUALITY ISSUE [None]
  - PRODUCT SUBSTITUTION ISSUE [None]
  - TABLET ISSUE [None]
